FAERS Safety Report 16819900 (Version 5)
Quarter: 2020Q1

REPORT INFORMATION
  Report Type: Report from Study
  Country: US (occurrence: US)
  Receive Date: 20190917
  Receipt Date: 20200327
  Transmission Date: 20200409
  Serious: Yes (Other)
  Sender: FDA-Public Use
  Company Number: PHEH2019US038243

PATIENT
  Sex: Female

DRUGS (1)
  1. ENTRESTO [Suspect]
     Active Substance: SACUBITRIL\VALSARTAN
     Indication: CARDIAC FAILURE
     Dosage: 50 MG(24 MG SACUBITRIL/26 MG VALSARTAN), BID
     Route: 048
     Dates: start: 201909

REACTIONS (2)
  - Hypotension [Recovering/Resolving]
  - Wrong technique in product usage process [Unknown]
